FAERS Safety Report 11645956 (Version 1)
Quarter: 2015Q4

REPORT INFORMATION
  Report Type: Spontaneous
  Country: US (occurrence: US)
  Receive Date: 20151020
  Receipt Date: 20151020
  Transmission Date: 20160304
  Serious: No
  Sender: FDA-Public Use
  Company Number: US-ROCHE-1603506

PATIENT
  Sex: Male

DRUGS (10)
  1. PROSCAR [Concomitant]
     Active Substance: FINASTERIDE
  2. FLONASE (UNITED STATES) [Concomitant]
  3. AVAPRO [Concomitant]
     Active Substance: IRBESARTAN
  4. ESBRIET [Suspect]
     Active Substance: PIRFENIDONE
     Route: 048
     Dates: start: 201504
  5. PROAIR HFA [Concomitant]
     Active Substance: ALBUTEROL SULFATE
  6. ECOTRIN [Concomitant]
     Active Substance: ASPIRIN
  7. PROTONIX (UNITED STATES) [Concomitant]
  8. PLAVIX [Concomitant]
     Active Substance: CLOPIDOGREL BISULFATE
  9. ESBRIET [Suspect]
     Active Substance: PIRFENIDONE
     Indication: IDIOPATHIC PULMONARY FIBROSIS
     Dosage: 3 CAPSULES THRICE DAILY
     Route: 048
     Dates: start: 20150506
  10. CRESTOR [Concomitant]
     Active Substance: ROSUVASTATIN CALCIUM

REACTIONS (3)
  - Cough [Unknown]
  - Dizziness [Unknown]
  - Rhinorrhoea [Recovering/Resolving]
